FAERS Safety Report 8061592-7 (Version None)
Quarter: 2012Q1

REPORT INFORMATION
  Report Type: 
  Country: None (occurrence: None)
  Receive Date: 20120122
  Receipt Date: 20110905
  Transmission Date: 20120608
  Serious: Yes (Hospitalization, Other)
  Sender: FDA-Public Use
  Company Number: PHHY2011HR79915

PATIENT
  Age: 31 Year
  Sex: Female

DRUGS (20)
  1. PIROXICAM [Concomitant]
     Indication: MUSCULOSKELETAL STIFFNESS
     Dosage: 20 MG, UNK
     Dates: start: 20070901
  2. ACETAMINOPHEN [Concomitant]
     Dosage: 2X325 MG, UNK
     Dates: start: 20070901
  3. SERTRALINE HYDROCHLORIDE [Concomitant]
     Indication: HEADACHE
     Dosage: UNK UKN, UNK
     Dates: start: 20090401
  4. LEVOTHYROXINE SODIUM [Concomitant]
     Indication: QUADRIPARESIS
     Dosage: 50 UG, UNK
  5. BACLOFEN [Suspect]
     Indication: FATIGUE
     Dosage: 3X10 MG, UNK
     Dates: start: 20070901
  6. DIAZEPAM [Suspect]
     Dosage: 5 MG, UNK
     Dates: start: 20070901
  7. PREGABALIN [Suspect]
     Indication: PAIN
     Dosage: 2X300 MG, UNK
     Dates: start: 20100301
  8. GINKGO BILOBA [Concomitant]
     Indication: RASH
     Dosage: 120 MG, UNK
     Dates: start: 20100301
  9. BACLOFEN [Suspect]
     Dosage: 3X25 MG, UNK
     Dates: start: 20080501
  10. FENTANYL [Suspect]
     Indication: FATIGUE
     Dosage: 100 UG/72 H, UNK
     Dates: start: 20100301
  11. PANTOPRAZOLE [Concomitant]
     Dosage: 20 MG, UNK
     Dates: start: 20090401
  12. ESOMEPRAZOLE [Concomitant]
     Indication: ASTHENIA
     Dosage: 2X20 MG, UNK
     Dates: start: 20100301
  13. TRAMADOL HCL [Concomitant]
     Dosage: 3X37.5 MG, UNK
  14. OXYCODONE HCL [Concomitant]
     Indication: SYNCOPE
     Dosage: 3X10 MG, UNK
     Dates: start: 20090401
  15. FEXOFENADINE [Concomitant]
     Indication: HEADACHE
     Dosage: 180 MG, UNK
  16. GABAPENTIN [Suspect]
     Indication: PSYCHOMOTOR SKILLS IMPAIRED
     Dosage: 3X300 MG, UNK
     Dates: start: 20090401
  17. BUPRENORPHINE [Concomitant]
     Indication: BRADYPHRENIA
     Dosage: 70 UG/72 H, UNK
     Dates: start: 20090401
  18. CARBAMAZEPINE [Suspect]
     Indication: HEADACHE
     Dosage: 3X200 MG, UNK
     Dates: start: 20070901
  19. NEUROBION FORTE [Concomitant]
     Indication: ASTHENIA
     Dosage: UNK UKN, UNK
     Dates: start: 20080501
  20. ALPRAZOLAM [Concomitant]
     Indication: DYSTHYMIC DISORDER
     Dosage: UNK UKN, UNK
     Dates: start: 20080501

REACTIONS (16)
  - CONVERSION DISORDER [None]
  - DIZZINESS [None]
  - QUADRIPARESIS [None]
  - ASTHENIA [None]
  - PAIN [None]
  - LOSS OF CONSCIOUSNESS [None]
  - FEELING ABNORMAL [None]
  - DIPLOPIA [None]
  - SEDATION [None]
  - DISTURBANCE IN ATTENTION [None]
  - SCHIZOPHRENIA [None]
  - DEPRESSION [None]
  - ANXIETY [None]
  - SYNCOPE [None]
  - COGNITIVE DISORDER [None]
  - NEUROSIS [None]
